FAERS Safety Report 6893771-6 (Version None)
Quarter: 2010Q3

REPORT INFORMATION
  Report Type: 
  Country: None (occurrence: None)
  Receive Date: 20100802
  Receipt Date: 20100721
  Transmission Date: 20110219
  Serious: Yes (Life-Threatening, Hospitalization)
  Sender: FDA-Public Use
  Company Number: CH-BIOGENIDEC-2010BI025372

PATIENT
  Age: 27 Year
  Sex: Female
  Weight: 62 kg

DRUGS (4)
  1. TYSABRI [Suspect]
     Indication: RELAPSING-REMITTING MULTIPLE SCLEROSIS
     Route: 042
     Dates: start: 20100301, end: 20100701
  2. SOLU-MEDROL [Concomitant]
  3. TAVEGYL [Concomitant]
  4. FERROSANOL [Concomitant]

REACTIONS (5)
  - CYANOSIS [None]
  - DYSPNOEA [None]
  - PANIC REACTION [None]
  - TACHYCARDIA [None]
  - TYPE I HYPERSENSITIVITY [None]
